FAERS Safety Report 8764132 (Version 1)
Quarter: 2012Q4

REPORT INFORMATION
  Report Type: 
  Country: CA (occurrence: CA)
  Receive Date: 20120831
  Receipt Date: 20120831
  Transmission Date: 20130627
  Serious: Yes (Life-Threatening, Other)
  Sender: FDA-Public Use
  Company Number: CA-BRISTOL-MYERS SQUIBB COMPANY-16876963

PATIENT
  Age: 16 Year
  Sex: Male

DRUGS (5)
  1. CISPLATIN [Suspect]
     Indication: BRAIN NEOPLASM
  2. ETOPOSIDE [Suspect]
     Indication: BRAIN NEOPLASM
  3. IFOSFAMIDE [Suspect]
     Indication: BRAIN NEOPLASM
  4. CYCLOPHOSPHAMIDE [Suspect]
     Indication: BRAIN NEOPLASM
  5. VINCRISTINE [Suspect]
     Indication: BRAIN NEOPLASM

REACTIONS (3)
  - Parkinsonism [Recovering/Resolving]
  - Encephalopathy [Recovering/Resolving]
  - Dystonia [Recovering/Resolving]
